FAERS Safety Report 20239051 (Version 1)
Quarter: 2021Q4

REPORT INFORMATION
  Report Type: Spontaneous
  Country: US (occurrence: US)
  Receive Date: 20211228
  Receipt Date: 20211228
  Transmission Date: 20220303
  Serious: Yes (Other)
  Sender: FDA-Public Use
  Company Number: US-PFIZER INC-202101796500

PATIENT
  Age: 71 Year
  Sex: Male

DRUGS (1)
  1. VYNDAMAX [Suspect]
     Active Substance: TAFAMIDIS
     Dosage: 61 MG

REACTIONS (7)
  - Malignant melanoma [Unknown]
  - Cardiomyopathy [Unknown]
  - Cardiac amyloidosis [Unknown]
  - Amyloidosis senile [Unknown]
  - Hyperlipidaemia [Unknown]
  - Dyspnoea exertional [Unknown]
  - Sleep apnoea syndrome [Unknown]
